FAERS Safety Report 7710640-X (Version None)
Quarter: 2011Q3

REPORT INFORMATION
  Report Type: 
  Country: None (occurrence: None)
  Receive Date: 20110825
  Receipt Date: 20110823
  Transmission Date: 20111222
  Serious: No
  Sender: FDA-Public Use
  Company Number: US-PFIZER INC-2011195786

PATIENT
  Age: 40 Year
  Sex: Female

DRUGS (5)
  1. VICODIN [Concomitant]
     Indication: PAIN
     Dosage: UNK
  2. TRAMADOL [Concomitant]
     Indication: PAIN
     Dosage: UNK
  3. LYRICA [Suspect]
     Indication: FIBROMYALGIA
     Dosage: UNK
     Route: 048
     Dates: start: 20070101
  4. AMBIEN [Concomitant]
     Indication: INSOMNIA
     Dosage: UNK
  5. ULTRAM [Concomitant]
     Dosage: UNK

REACTIONS (1)
  - WEIGHT INCREASED [None]
